FAERS Safety Report 10088646 (Version 1)
Quarter: 2014Q2

REPORT INFORMATION
  Report Type: Spontaneous
  Country: US (occurrence: US)
  Receive Date: 20140421
  Receipt Date: 20140421
  Transmission Date: 20141212
  Serious: No
  Sender: FDA-Public Use
  Company Number: US-BIOGENIDEC-2014BI032915

PATIENT
  Sex: Female

DRUGS (11)
  1. TECFIDERA [Suspect]
     Indication: MULTIPLE SCLEROSIS
     Route: 048
     Dates: start: 20130902
  2. CALCIUM [Concomitant]
  3. MAGNESIUM-ZINC [Concomitant]
  4. BIOTIN [Concomitant]
  5. CKLA (NOS) [Concomitant]
  6. EFFEXOR [Concomitant]
  7. BACLOFEN [Concomitant]
  8. ASPIRIN [Concomitant]
  9. DETROL LA [Concomitant]
  10. EMU OIL [Concomitant]
  11. HERBAL TEA SMOOTH [Concomitant]

REACTIONS (1)
  - Constipation [Unknown]
